FAERS Safety Report 21403259 (Version 9)
Quarter: 2025Q3

REPORT INFORMATION
  Report Type: Report from Study
  Country: JP (occurrence: JP)
  Receive Date: 20221003
  Receipt Date: 20250917
  Transmission Date: 20251021
  Serious: Yes (Death, Hospitalization, Disabling, Other)
  Sender: ABBVIE
  Company Number: JP-TAKEDA-2019TJP026371

PATIENT
  Age: 58 Year
  Sex: Male
  Weight: 72.6 kg

DRUGS (10)
  1. LEUPROLIDE ACETATE [Suspect]
     Active Substance: LEUPROLIDE ACETATE
     Indication: Bulbospinal muscular atrophy congenital
     Dosage: 11.25 MILLIGRAM, Q3MONTHS
     Route: 058
     Dates: start: 20190520, end: 20250225
  2. TENORMIN [Concomitant]
     Active Substance: ATENOLOL
     Indication: Product used for unknown indication
     Route: 048
     Dates: end: 20250507
  3. CRESTOR [Concomitant]
     Active Substance: ROSUVASTATIN CALCIUM
     Indication: Product used for unknown indication
     Route: 048
     Dates: end: 20250507
  4. AMLODIPINE BESYLATE\TELMISARTAN [Concomitant]
     Active Substance: AMLODIPINE BESYLATE\TELMISARTAN
     Indication: Product used for unknown indication
     Route: 048
     Dates: end: 20250507
  5. AMBROXOL HYDROCHLORIDE [Concomitant]
     Active Substance: AMBROXOL HYDROCHLORIDE
     Indication: Bulbospinal muscular atrophy congenital
     Route: 048
     Dates: end: 20250507
  6. CARBOCYSTEINE [Concomitant]
     Active Substance: CARBOCYSTEINE
     Indication: Bulbospinal muscular atrophy congenital
     Route: 048
     Dates: end: 20250507
  7. ALLEGRA [Concomitant]
     Active Substance: FEXOFENADINE HYDROCHLORIDE
     Indication: Dermatitis allergic
     Route: 048
     Dates: end: 20250507
  8. OPALMON [Concomitant]
     Active Substance: LIMAPROST
     Indication: Bulbospinal muscular atrophy congenital
     Route: 048
     Dates: end: 20250507
  9. METHYLCOBALAMIN [Concomitant]
     Active Substance: METHYLCOBALAMIN
     Indication: Bulbospinal muscular atrophy congenital
     Route: 048
     Dates: end: 20250507
  10. AMBROXOL HYDROCHLORIDE [Concomitant]
     Active Substance: AMBROXOL HYDROCHLORIDE
     Indication: Product used for unknown indication

REACTIONS (13)
  - Pneumonia [Fatal]
  - Injection site necrosis [Recovering/Resolving]
  - Injection site abscess [Recovered/Resolved]
  - Injection site abscess [Recovering/Resolving]
  - Injection site dermatitis [Recovered/Resolved]
  - Injection site abscess [Recovered/Resolved]
  - Injection site haemorrhage [Recovered/Resolved]
  - Injection site necrosis [Recovered/Resolved]
  - Injection site dermatitis [Recovering/Resolving]
  - Injection site ulcer [Recovered/Resolved]
  - Injection site abscess [Recovered/Resolved]
  - Diabetes mellitus [Recovering/Resolving]
  - Coronavirus infection [Recovered/Resolved]

NARRATIVE: CASE EVENT DATE: 20190610
